FAERS Safety Report 9768809 (Version 3)
Quarter: 2013Q4

REPORT INFORMATION
  Report Type: Report from Study
  Country: GB (occurrence: GB)
  Receive Date: 20131218
  Receipt Date: 20131226
  Transmission Date: 20140711
  Serious: Yes (Death, Other)
  Sender: FDA-Public Use
  Company Number: GB-ROCHE-1320588

PATIENT
  Age: 85 Year
  Sex: Male

DRUGS (6)
  1. RANIBIZUMAB [Suspect]
     Indication: PRODUCT USED FOR UNKNOWN INDICATION
     Dosage: MOST RECENT DOSE PRIOR TO SAE WAS ON 20/MAY/2012
     Route: 050
     Dates: start: 20090511
  2. RANIBIZUMAB [Suspect]
     Route: 050
     Dates: start: 20120520
  3. BRINZOLAMIDE [Concomitant]
  4. DOXAZOSIN [Concomitant]
  5. ATORVASTATIN [Concomitant]
  6. IRBESARTAN [Concomitant]

REACTIONS (8)
  - Cardiac failure congestive [Fatal]
  - Renal mass [Not Recovered/Not Resolved]
  - Renal cancer [Not Recovered/Not Resolved]
  - Myocardial infarction [Unknown]
  - Angina pectoris [Unknown]
  - Gastrooesophageal reflux disease [Unknown]
  - Obesity [Unknown]
  - Open angle glaucoma [Unknown]
